FAERS Safety Report 7039999-6 (Version None)
Quarter: 2010Q4

REPORT INFORMATION
  Report Type: 
  Country: None (occurrence: None)
  Receive Date: 20101012
  Receipt Date: 20101007
  Transmission Date: 20110411
  Serious: Yes (Hospitalization)
  Sender: FDA-Public Use
  Company Number: Z0002834B

PATIENT
  Age: 34 Year
  Sex: Male
  Weight: 63.9 kg

DRUGS (4)
  1. OFATUMUMAB [Suspect]
     Indication: LYMPHOMA
     Route: 042
     Dates: start: 20091228
  2. DEXAMETHASONE [Suspect]
     Indication: LYMPHOMA
     Route: 042
     Dates: start: 20091228
  3. CISPLATIN [Suspect]
     Indication: LYMPHOMA
     Dosage: 100MGM2 CONTINUOUS
     Route: 042
     Dates: start: 20091228
  4. CYTARABINE [Suspect]
     Indication: LYMPHOMA
     Route: 042
     Dates: start: 20091229

REACTIONS (3)
  - HAEMOGLOBIN DECREASED [None]
  - HYPOTENSION [None]
  - PNEUMONIA [None]
